FAERS Safety Report 19300871 (Version 1)
Quarter: 2021Q2

REPORT INFORMATION
  Report Type: Other
  Country: US (occurrence: US)
  Receive Date: 20210524
  Receipt Date: 20210524
  Transmission Date: 20210717
  Serious: Yes (Hospitalization, Other)
  Sender: FDA-Public Use
  Company Number: US-INVATECH-000076

PATIENT
  Age: 57 Year
  Sex: Female

DRUGS (3)
  1. LEVETIRACETAM. [Concomitant]
     Active Substance: LEVETIRACETAM
     Indication: CHOREA
     Dosage: 750 MG BY MOUTH TWICE DAILY.
     Route: 048
  2. LEVETIRACETAM. [Concomitant]
     Active Substance: LEVETIRACETAM
     Indication: CHOREA
     Dosage: 250 MG TWICE DAILY.
  3. VALPROIC ACID. [Suspect]
     Active Substance: VALPROIC ACID
     Indication: CHOREA
     Dosage: 250 MG BY MOUTH 3 TIMES DAILY.
     Route: 048

REACTIONS (7)
  - Drug ineffective [Unknown]
  - Subdural haematoma [Recovering/Resolving]
  - Mouth haemorrhage [Unknown]
  - Thrombocytopenia [Recovered/Resolved]
  - Vaginal haemorrhage [Unknown]
  - Chorea [Unknown]
  - Drug level below therapeutic [Unknown]
